FAERS Safety Report 8511520-2 (Version None)
Quarter: 2012Q3

REPORT INFORMATION
  Report Type: 
  Country: None (occurrence: None)
  Receive Date: 20120716
  Receipt Date: 20120710
  Transmission Date: 20120928
  Serious: Yes (Other)
  Sender: FDA-Public Use
  Company Number: IN-PFIZER INC-2012111640

PATIENT
  Sex: Male

DRUGS (2)
  1. SUTENT [Suspect]
     Indication: METASTATIC RENAL CELL CARCINOMA
     Dosage: 50 MG, 1X/DAY
     Route: 048
     Dates: start: 20120424
  2. SUTENT [Suspect]
     Dosage: 37.5 MG, UNK
     Dates: end: 20120601

REACTIONS (4)
  - GENITAL ERYTHEMA [None]
  - MOUTH ULCERATION [None]
  - ANAL HAEMORRHAGE [None]
  - ASTHENIA [None]
